FAERS Safety Report 5253136-X (Version None)
Quarter: 2007Q1

REPORT INFORMATION
  Report Type: 
  Country: None (occurrence: None)
  Receive Date: 20070301
  Receipt Date: 20070226
  Transmission Date: 20070707
  Serious: Yes (Other)
  Sender: FDA-Public Use
  Company Number: FR-GLAXOSMITHKLINE-B0458554A

PATIENT
  Age: 56 Year
  Sex: Male
  Weight: 88 kg

DRUGS (3)
  1. MALARONE [Suspect]
     Indication: MALARIA PROPHYLAXIS
     Dosage: 1TAB PER DAY
     Route: 048
     Dates: start: 20070101, end: 20070201
  2. CORDARONE [Concomitant]
     Indication: ARRHYTHMIA
     Dosage: 200MG PER DAY
     Route: 048
     Dates: start: 20040101
  3. VASTAREL [Concomitant]
     Indication: ANGINA PECTORIS
     Dosage: 35DROP TWICE PER DAY
     Route: 048
     Dates: start: 20020101

REACTIONS (3)
  - ABDOMINAL PAIN [None]
  - COLITIS [None]
  - GASTROINTESTINAL DISORDER [None]
